FAERS Safety Report 26075583 (Version 1)
Quarter: 2025Q4

REPORT INFORMATION
  Report Type: Spontaneous
  Country: IN (occurrence: IN)
  Receive Date: 20251121
  Receipt Date: 20251121
  Transmission Date: 20260117
  Serious: Yes (Other)
  Sender: MYLAN
  Company Number: IN-MYLANLABS-2025M1099222

PATIENT
  Age: 79 Year
  Sex: Male

DRUGS (6)
  1. VANCOMYCIN [Suspect]
     Active Substance: VANCOMYCIN
     Indication: Evidence based treatment
     Dosage: UNK, Q2H,UNK, FORTIFIED EYE DROPS
  2. VANCOMYCIN [Suspect]
     Active Substance: VANCOMYCIN
     Indication: Corneal abscess
  3. AMIKACIN [Suspect]
     Active Substance: AMIKACIN
     Indication: Evidence based treatment
     Dosage: UNK, Q2H, FORTIFIED EYE DROPS
  4. AMIKACIN [Suspect]
     Active Substance: AMIKACIN
     Indication: Corneal abscess
  5. DOXYCYCLINE [Concomitant]
     Active Substance: DOXYCYCLINE
     Indication: Evidence based treatment
     Dosage: 100 MILLIGRAM, BID
  6. DOXYCYCLINE [Concomitant]
     Active Substance: DOXYCYCLINE
     Indication: Corneal abscess

REACTIONS (2)
  - Toxicity to various agents [Recovering/Resolving]
  - Corneal epithelium defect [Recovering/Resolving]
